FAERS Safety Report 5538241-2 (Version None)
Quarter: 2007Q4

REPORT INFORMATION
  Report Type: 
  Country: None (occurrence: None)
  Receive Date: 20071207
  Receipt Date: 20071128
  Transmission Date: 20080405
  Serious: Yes (Other)
  Sender: FDA-Public Use
  Company Number: CH-MERCK-0711USA06990

PATIENT
  Age: 84 Year
  Sex: Male
  Weight: 51 kg

DRUGS (9)
  1. PRINIVIL [Suspect]
     Indication: ESSENTIAL HYPERTENSION
     Route: 048
     Dates: start: 20061210, end: 20061219
  2. HYDROXYUREA [Suspect]
     Indication: POLYCYTHAEMIA VERA
     Route: 048
     Dates: start: 20060601
  3. HYDROXYUREA [Suspect]
     Route: 048
     Dates: end: 20061219
  4. TIAPRIDE HYDROCHLORIDE [Suspect]
     Indication: DYSKINESIA
     Route: 048
     Dates: start: 20061215, end: 20061219
  5. HYTRIN [Concomitant]
     Route: 065
     Dates: start: 20060701, end: 20061219
  6. SEROQUEL [Concomitant]
     Route: 065
     Dates: start: 20060701, end: 20061215
  7. GLYSENNID [Concomitant]
     Route: 065
     Dates: start: 20060701
  8. ASPIRIN [Concomitant]
     Route: 065
     Dates: start: 20060701
  9. VITARUBIN [Concomitant]
     Route: 065
     Dates: start: 20060801

REACTIONS (2)
  - AGRANULOCYTOSIS [None]
  - ERYTHEMA MULTIFORME [None]
